FAERS Safety Report 19035425 (Version 1)
Quarter: 2021Q1

REPORT INFORMATION
  Report Type: Other
  Country: US (occurrence: US)
  Receive Date: 20210320
  Receipt Date: 20210320
  Transmission Date: 20210420
  Serious: No
  Sender: FDA-Public Use
  Company Number: US-ACORDA-ACO_167552_2021

PATIENT
  Age: 65 Year
  Sex: Male

DRUGS (4)
  1. INBRIJA [Suspect]
     Active Substance: LEVODOPA
     Indication: PARKINSON^S DISEASE
     Dosage: 84 MILLIGRAM, PRN  NOT TO EXCEED 5 DOSES A DAY
     Dates: start: 20210217
  2. CARBIDOPA;LEVODOPA [Concomitant]
     Active Substance: CARBIDOPA\LEVODOPA
     Indication: PRODUCT USED FOR UNKNOWN INDICATION
     Dosage: 25/250 MG 1 PILL 4X/DAY
     Route: 065
  3. INBRIJA [Suspect]
     Active Substance: LEVODOPA
     Indication: ON AND OFF PHENOMENON
  4. PROPANOLOL [PROPRANOLOL] [Concomitant]
     Active Substance: PROPRANOLOL HYDROCHLORIDE
     Indication: PRODUCT USED FOR UNKNOWN INDICATION
     Dosage: 80 MILLIGRAM, 1 PILL 1X/DAY
     Route: 065

REACTIONS (7)
  - Gait disturbance [Unknown]
  - Device issue [Unknown]
  - Product residue present [Unknown]
  - Speech disorder [Unknown]
  - Therapeutic response unexpected [Unknown]
  - Wrong technique in device usage process [Unknown]
  - Product dose omission issue [Unknown]

NARRATIVE: CASE EVENT DATE: 20210219
